FAERS Safety Report 11093527 (Version 1)
Quarter: 2015Q2

REPORT INFORMATION
  Report Type: Spontaneous
  Country: US (occurrence: None)
  Receive Date: 20150428
  Receipt Date: 20150428
  Transmission Date: 20150821
  Serious: Yes (Other)
  Sender: FDA-Public Use
  Company Number: PHEH2014US026199

PATIENT
  Age: 59 Year
  Sex: Female

DRUGS (1)
  1. GILENYA [Suspect]
     Active Substance: FINGOLIMOD HYDROCHLORIDE
     Indication: RELAPSING-REMITTING MULTIPLE SCLEROSIS
     Route: 048
     Dates: start: 2011

REACTIONS (5)
  - Cryptococcal cutaneous infection [None]
  - White blood cell count decreased [None]
  - Skin lesion [None]
  - Lymphocyte count decreased [None]
  - Weight decreased [None]

NARRATIVE: CASE EVENT DATE: 20141219
